FAERS Safety Report 8110498-3 (Version None)
Quarter: 2012Q1

REPORT INFORMATION
  Report Type: 
  Country: None (occurrence: None)
  Receive Date: 20120202
  Receipt Date: 20120124
  Transmission Date: 20120608
  Serious: Yes (Hospitalization)
  Sender: FDA-Public Use
  Company Number: US-ASTRAZENECA-2012SE04742

PATIENT
  Age: 78 Year
  Sex: Male
  Weight: 87.5 kg

DRUGS (8)
  1. TERAZOSIN HCL [Concomitant]
     Indication: RENAL DISORDER
  2. LASIX [Concomitant]
     Indication: DIURETIC THERAPY
  3. NEXIUM [Suspect]
     Indication: BARRETT'S OESOPHAGUS
     Route: 048
  4. METOPROLOL [Concomitant]
     Indication: HYPERTENSION
  5. ISOSORBIDE DINITRATE [Concomitant]
     Indication: HYPERTENSION
  6. BENAZEPRIL HYDROCHLORIDE [Concomitant]
     Indication: HYPERTENSION
  7. NORVASC [Concomitant]
     Indication: HYPERTENSION
  8. SIMVASTATIN [Concomitant]

REACTIONS (5)
  - CEREBROVASCULAR ACCIDENT [None]
  - OFF LABEL USE [None]
  - DIABETES MELLITUS [None]
  - HYPERTENSION [None]
  - DIZZINESS [None]
